FAERS Safety Report 9736991 (Version 1)
Quarter: 2013Q4

REPORT INFORMATION
  Report Type: Spontaneous
  Country: US (occurrence: US)
  Receive Date: 20131206
  Receipt Date: 20131206
  Transmission Date: 20140711
  Serious: Yes (Other)
  Sender: FDA-Public Use
  Company Number: US-ALLERGAN-1318953US

PATIENT
  Age: 77 Year
  Sex: Female

DRUGS (1)
  1. BOTOX AND BOTOX COSMETIC [Suspect]
     Indication: OESOPHAGEAL DISORDER
     Dosage: UNK, SINGLE
     Route: 030

REACTIONS (1)
  - Pancreatitis acute [Recovered/Resolved]
